FAERS Safety Report 8154260-4 (Version None)
Quarter: 2012Q1

REPORT INFORMATION
  Report Type: 
  Country: None (occurrence: None)
  Receive Date: 20120221
  Receipt Date: 20120216
  Transmission Date: 20120608
  Serious: Yes (Other)
  Sender: FDA-Public Use
  Company Number: US-PFIZER INC-2012043150

PATIENT
  Sex: Female
  Weight: 56.689 kg

DRUGS (1)
  1. ZITHROMAX [Suspect]
     Indication: SINUSITIS
     Dosage: UNK

REACTIONS (3)
  - CARDIAC FLUTTER [None]
  - ARRHYTHMIA [None]
  - HEART RATE INCREASED [None]
